FAERS Safety Report 20065043 (Version 2)
Quarter: 2021Q4

REPORT INFORMATION
  Report Type: Spontaneous
  Country: US (occurrence: US)
  Receive Date: 20211113
  Receipt Date: 20211231
  Transmission Date: 20220303
  Serious: Yes (Hospitalization, Other)
  Sender: FDA-Public Use
  Company Number: US-UNITED THERAPEUTICS-UNT-2021-020329

PATIENT
  Sex: Female
  Weight: 70.295 kg

DRUGS (6)
  1. TYVASO [Suspect]
     Active Substance: TREPROSTINIL
     Indication: Pulmonary arterial hypertension
     Dosage: UNK
     Dates: start: 20210709
  2. TYVASO [Suspect]
     Active Substance: TREPROSTINIL
     Dosage: 60-120 ?G, QID
     Dates: start: 2021
  3. TYVASO [Suspect]
     Active Substance: TREPROSTINIL
     Dosage: 18-54 ?G, QID
     Dates: start: 2021
  4. TYVASO [Suspect]
     Active Substance: TREPROSTINIL
     Dosage: 54-120 ?G, QID
     Dates: start: 2021
  5. TYVASO [Suspect]
     Active Substance: TREPROSTINIL
     Dosage: 54-120 ?G, QID
     Dates: start: 2021
  6. LASIX [Suspect]
     Active Substance: FUROSEMIDE
     Indication: Product used for unknown indication
     Dosage: UNK
     Route: 065
     Dates: end: 2021

REACTIONS (14)
  - Myocardial infarction [Unknown]
  - Palpitations [Unknown]
  - Dizziness [Unknown]
  - Asthenia [Unknown]
  - Dyspnoea [Unknown]
  - Incontinence [Unknown]
  - Exposure to SARS-CoV-2 [Unknown]
  - Blood glucose decreased [Unknown]
  - Fatigue [Unknown]
  - Appetite disorder [Unknown]
  - Supraventricular tachycardia [Unknown]
  - Nausea [Unknown]
  - Feeling abnormal [Unknown]
  - Off label use [Unknown]

NARRATIVE: CASE EVENT DATE: 20210101
